FAERS Safety Report 10651727 (Version 1)
Quarter: 2014Q4

REPORT INFORMATION
  Report Type: Spontaneous
  Country: US (occurrence: None)
  Receive Date: 20141212
  Receipt Date: 20141212
  Transmission Date: 20150529
  Serious: No
  Sender: FDA-Public Use
  Company Number: None

PATIENT
  Age: 61 Year
  Sex: Male

DRUGS (1)
  1. BYDUREON [Suspect]
     Active Substance: EXENATIDE
     Indication: DIABETES MELLITUS
     Dates: start: 20141101, end: 20141104

REACTIONS (4)
  - Cellulitis [None]
  - Rash [None]
  - Injection site necrosis [None]
  - Injection site erythema [None]

NARRATIVE: CASE EVENT DATE: 20141104
